FAERS Safety Report 4786692-6 (Version None)
Quarter: 2005Q4

REPORT INFORMATION
  Report Type: 
  Country: None (occurrence: None)
  Receive Date: 20051004
  Receipt Date: 20050921
  Transmission Date: 20060501
  Serious: Yes (Life-Threatening)
  Sender: FDA-Public Use
  Company Number: ES-BOEHRINGER INGELHEIM PHARMACEUTICALS, INC.-2005-ES-00267ES

PATIENT
  Age: 84 Year
  Sex: Female

DRUGS (2)
  1. MOVALIS 15MG [Suspect]
     Indication: OSTEOARTHRITIS
     Route: 048
     Dates: start: 20040801, end: 20041203
  2. DIGARIL PROLIB [Suspect]
     Indication: HYPERCHOLESTEROLAEMIA
     Route: 048
     Dates: start: 20040801, end: 20041203

REACTIONS (2)
  - HEPATIC ENZYME INCREASED [None]
  - HEPATITIS TOXIC [None]
